FAERS Safety Report 8550264-8 (Version None)
Quarter: 2012Q3

REPORT INFORMATION
  Report Type: 
  Country: None (occurrence: None)
  Receive Date: 20120730
  Receipt Date: 20120723
  Transmission Date: 20120928
  Serious: Yes (Other)
  Sender: FDA-Public Use
  Company Number: PHHY2012NL064671

PATIENT

DRUGS (2)
  1. COTRIM [Suspect]
     Indication: ATRIAL FIBRILLATION
     Route: 048
  2. MARCUMAR [Suspect]
     Indication: ATRIAL FIBRILLATION
     Route: 048

REACTIONS (2)
  - INTERNATIONAL NORMALISED RATIO INCREASED [None]
  - GASTROINTESTINAL HAEMORRHAGE [None]
